FAERS Safety Report 11735808 (Version 1)
Quarter: 2015Q4

REPORT INFORMATION
  Report Type: Spontaneous
  Country: US (occurrence: US)
  Receive Date: 20151113
  Receipt Date: 20151113
  Transmission Date: 20160304
  Serious: No
  Sender: FDA-Public Use
  Company Number: US-JNJFOC-20151009853

PATIENT
  Sex: Female

DRUGS (6)
  1. VICTOZA [Concomitant]
     Active Substance: LIRAGLUTIDE
     Route: 050
  2. GLYBURIDE. [Concomitant]
     Active Substance: GLYBURIDE
     Route: 065
  3. METFORMIN [Concomitant]
     Active Substance: METFORMIN HYDROCHLORIDE
     Route: 065
  4. INVOKANA [Suspect]
     Active Substance: CANAGLIFLOZIN
     Indication: PRODUCT USED FOR UNKNOWN INDICATION
     Route: 048
     Dates: start: 20151010
  5. LOSARTAN. [Concomitant]
     Active Substance: LOSARTAN
     Indication: DIURETIC THERAPY
     Route: 065
  6. LOSARTAN. [Concomitant]
     Active Substance: LOSARTAN
     Indication: BLOOD PRESSURE MEASUREMENT
     Route: 065

REACTIONS (5)
  - Fatigue [Not Recovered/Not Resolved]
  - Anxiety [Not Recovered/Not Resolved]
  - Decreased appetite [Not Recovered/Not Resolved]
  - Tremor [Not Recovered/Not Resolved]
  - Blood glucose fluctuation [Unknown]

NARRATIVE: CASE EVENT DATE: 201510
